FAERS Safety Report 4363838-5 (Version None)
Quarter: 2004Q2

REPORT INFORMATION
  Report Type: 
  Country: None (occurrence: None)
  Receive Date: 20040521
  Receipt Date: 20040423
  Transmission Date: 20050107
  Serious: Yes (Hospitalization)
  Sender: FDA-Public Use
  Company Number: 2003-03332

PATIENT
  Age: 74 Year
  Sex: Male

DRUGS (1)
  1. IMMUCYST (BCG - IT (CONNAUGHT)), AVENTIS PASTEUR LTD., LOT NOT REP, I [Suspect]
     Indication: BLADDER CANCER
     Dosage: B.IN., BLADDER
     Dates: start: 20031007

REACTIONS (10)
  - BOVINE TUBERCULOSIS [None]
  - CHOLESTASIS [None]
  - DEAFNESS NEUROSENSORY [None]
  - DIZZINESS [None]
  - DRUG INEFFECTIVE [None]
  - INTERSTITIAL LUNG DISEASE [None]
  - MYCOBACTERIA URINE TEST POSITIVE [None]
  - PULMONARY EMBOLISM [None]
  - WEIGHT DECREASED [None]
  - WEIGHT INCREASED [None]
